FAERS Safety Report 18366863 (Version 3)
Quarter: 2021Q1

REPORT INFORMATION
  Report Type: Report from Study
  Country: CA (occurrence: CA)
  Receive Date: 20201009
  Receipt Date: 20210222
  Transmission Date: 20210419
  Serious: Yes (Disabling)
  Sender: FDA-Public Use
  Company Number: CA-JNJFOC-20201001487

PATIENT
  Age: 13 Year
  Sex: Female
  Weight: 64 kg

DRUGS (2)
  1. REMICADE [Suspect]
     Active Substance: INFLIXIMAB
     Dosage: ON 15?FEB?2021, THE PATIENT RECEIVED 25TH 500 MG INFLIXIMAB INFUSION.
     Route: 042
  2. REMICADE [Suspect]
     Active Substance: INFLIXIMAB
     Indication: COLITIS ULCERATIVE
     Dosage: DOSE INCREASED
     Route: 042
     Dates: start: 20171220

REACTIONS (4)
  - Sports injury [Unknown]
  - Off label use [Unknown]
  - Ligament sprain [Unknown]
  - Product use issue [Unknown]

NARRATIVE: CASE EVENT DATE: 20171220
